FAERS Safety Report 19750159 (Version 2)
Quarter: 2021Q3

REPORT INFORMATION
  Report Type: Spontaneous
  Country: PL (occurrence: PL)
  Receive Date: 20210826
  Receipt Date: 20210830
  Transmission Date: 20211014
  Serious: Yes (Other)
  Sender: FDA-Public Use
  Company Number: NVSC2021PL191617

PATIENT
  Sex: Male

DRUGS (6)
  1. SOMATROPIN. [Suspect]
     Active Substance: SOMATROPIN
     Indication: GROWTH HORMONE DEFICIENCY
     Dosage: DOSE NOT REPORTED
     Route: 065
  2. DEXAMETHASONE. [Concomitant]
     Active Substance: DEXAMETHASONE
     Indication: CEREBRAL SALT-WASTING SYNDROME
     Dosage: 0.5 MG AT BEDTIME
     Route: 065
  3. DEXAMETHASONE. [Concomitant]
     Active Substance: DEXAMETHASONE
     Indication: ADRENAL INSUFFICIENCY
  4. TESTOSTERONE. [Concomitant]
     Active Substance: TESTOSTERONE
     Indication: CONGENITAL HYPOGONADOTROPIC HYPOGONADISM
     Dosage: DOSE NOT REPORTED
     Route: 065
  5. FLUDROCORTISONE [Concomitant]
     Active Substance: FLUDROCORTISONE
     Indication: CEREBRAL SALT-WASTING SYNDROME
     Dosage: 100 MCG IN MORNING
     Route: 065
  6. HYDROCORTISONE. [Concomitant]
     Active Substance: HYDROCORTISONE
     Indication: ADRENAL INSUFFICIENCY
     Dosage: 10 MG IN MORNING
     Route: 065

REACTIONS (1)
  - Secondary hypothyroidism [Unknown]
